FAERS Safety Report 16368733 (Version 4)
Quarter: 2019Q3

REPORT INFORMATION
  Report Type: Spontaneous
  Country: US (occurrence: US)
  Receive Date: 20190529
  Receipt Date: 20190705
  Transmission Date: 20191004
  Serious: Yes (Other)
  Sender: FDA-Public Use
  Company Number: US-PFIZER INC-2019214242

PATIENT
  Age: 39 Year
  Sex: Female

DRUGS (1)
  1. LYRICA [Suspect]
     Active Substance: PREGABALIN
     Indication: POLYNEUROPATHY
     Dosage: 150 MG, 3X/DAY
     Route: 048

REACTIONS (10)
  - Gait disturbance [Unknown]
  - Nausea [Unknown]
  - Anxiety [Unknown]
  - Tremor [Unknown]
  - Drug dependence [Unknown]
  - Hyperhidrosis [Unknown]
  - Malaise [Unknown]
  - Muscular weakness [Unknown]
  - Withdrawal syndrome [Unknown]
  - Lip blister [Unknown]
